FAERS Safety Report 18851031 (Version 2)
Quarter: 2021Q2

REPORT INFORMATION
  Report Type: Spontaneous
  Country: AT (occurrence: AT)
  Receive Date: 20210204
  Receipt Date: 20210610
  Transmission Date: 20210717
  Serious: Yes (Other)
  Sender: FDA-Public Use
  Company Number: NVSC2021AT020693

PATIENT
  Age: 48 Year
  Sex: Female
  Weight: 60 kg

DRUGS (6)
  1. LETROZOLE. [Suspect]
     Active Substance: LETROZOLE
     Indication: HER2 POSITIVE BREAST CANCER
     Dosage: 2.5 MG,QD (MOST RECENT DOSE PRIOR TO EVENT ONSET: 12 NOV 2019)
     Route: 048
     Dates: start: 20190208
  2. VINORELBINE [Suspect]
     Active Substance: VINORELBINE TARTRATE
     Indication: HER2 POSITIVE BREAST CANCER
     Dosage: 50 MG (MOST RECENT DOSE PRIOR TO EVENT ONSET: 18 SEP 2019)
     Route: 048
     Dates: start: 20190418
  3. TRASTUZUMAB. [Suspect]
     Active Substance: TRASTUZUMAB
     Indication: HER2 POSITIVE BREAST CANCER
     Dosage: 8 MG, Q3W (MOST RECENT DOSE PRIOR TO THE EVENT: 04 MAR 2019)
     Route: 042
     Dates: start: 20190208, end: 20190208
  4. GOSERELIN [Suspect]
     Active Substance: GOSERELIN
     Indication: HER2 POSITIVE BREAST CANCER
     Dosage: 3.6 MG
     Route: 058
     Dates: start: 20190208
  5. ANASTROZOLE. [Suspect]
     Active Substance: ANASTROZOLE
     Indication: HER2 POSITIVE BREAST CANCER
     Dosage: 1 MG, QD
     Route: 048
     Dates: start: 20191113
  6. PERTUZUMAB. [Suspect]
     Active Substance: PERTUZUMAB
     Indication: HER2 POSITIVE BREAST CANCER
     Dosage: 840 MG, Q3W (MOST RECENT DOSE PRIOR TO THE EVENT: 04 MAR 2019)
     Route: 042
     Dates: start: 20190208, end: 20190208

REACTIONS (1)
  - Toxic skin eruption [Recovered/Resolved]

NARRATIVE: CASE EVENT DATE: 20200909
